FAERS Safety Report 19787305 (Version 1)
Quarter: 2021Q3

REPORT INFORMATION
  Report Type: Spontaneous
  Country: US (occurrence: US)
  Receive Date: 20210903
  Receipt Date: 20210903
  Transmission Date: 20211014
  Serious: No
  Sender: FDA-Public Use
  Company Number: US-INCYTE CORPORATION-2021IN007761

PATIENT

DRUGS (2)
  1. JAKAFI [Suspect]
     Active Substance: RUXOLITINIB
     Dosage: 10 MILLIGRAM, QD (TAKE ONE 10MG TABLET BY MOUTH EVERY MORNING)
     Route: 048
     Dates: start: 20190129
  2. JAKAFI [Suspect]
     Active Substance: RUXOLITINIB
     Dosage: 5 MILLIGRAM, QD (TAKE ONE MG TAB)
     Route: 048
     Dates: start: 20190129

REACTIONS (1)
  - Fall [Recovering/Resolving]
